FAERS Safety Report 23838285 (Version 1)
Quarter: 2024Q2

REPORT INFORMATION
  Report Type: Spontaneous
  Country: US (occurrence: US)
  Receive Date: 20240509
  Receipt Date: 20240509
  Transmission Date: 20240715
  Serious: No
  Sender: FDA-Public Use
  Company Number: US-INTRA-CELLULAR THERAPIES, INC.-2024ICT00209

PATIENT
  Age: 79 Year
  Sex: Female
  Weight: 90.703 kg

DRUGS (5)
  1. CAPLYTA [Suspect]
     Active Substance: LUMATEPERONE
     Indication: Bipolar disorder
     Dosage: 10.5 MG, 1X/DAY, OPEN IT UP AND SPRINKLE ON APPLESAUCE
     Route: 048
     Dates: start: 20240131, end: 202402
  2. CRANBERRY [Concomitant]
     Active Substance: CRANBERRY
     Dosage: 3 DOSAGE UNITS, 1X/DAY
  3. METOPROLOL [Concomitant]
     Active Substance: METOPROLOL
  4. HYDROCHLOROTHIAZIDE [Concomitant]
     Active Substance: HYDROCHLOROTHIAZIDE
  5. UNSPECIFIED OVER THE COUNTER MEDICATIONS [Concomitant]

REACTIONS (3)
  - Fatigue [Recovering/Resolving]
  - Incorrect dose administered [Not Recovered/Not Resolved]
  - Wheezing [Recovered/Resolved]

NARRATIVE: CASE EVENT DATE: 20240131
